FAERS Safety Report 8173187-5 (Version None)
Quarter: 2012Q1

REPORT INFORMATION
  Report Type: 
  Country: None (occurrence: None)
  Receive Date: 20120229
  Receipt Date: 20110620
  Transmission Date: 20120608
  Serious: No
  Sender: FDA-Public Use
  Company Number: US-GLAXOSMITHKLINE-A0933327A

PATIENT
  Age: 28 Year
  Sex: Female

DRUGS (2)
  1. IMITREX [Suspect]
     Indication: PRODUCT USED FOR UNKNOWN INDICATION
  2. VELAGLUCERASE ALFA [Suspect]
     Indication: GAUCHER'S DISEASE
     Dosage: 4000IU EVERY TWO WEEKS
     Dates: start: 20110114

REACTIONS (3)
  - INFUSION RELATED REACTION [None]
  - CHEST PAIN [None]
  - PAIN IN EXTREMITY [None]
